FAERS Safety Report 8089127-3 (Version None)
Quarter: 2012Q1

REPORT INFORMATION
  Report Type: 
  Country: None (occurrence: None)
  Receive Date: 20120128
  Receipt Date: 20110627
  Transmission Date: 20120608
  Serious: No
  Sender: FDA-Public Use
  Company Number: US-ABBOTT-11P-163-0834609-00

PATIENT
  Age: 67 Year
  Sex: Female

DRUGS (17)
  1. FISH OIL [Concomitant]
     Indication: MINERAL SUPPLEMENTATION
  2. NASAL SPRAY [Concomitant]
     Indication: SEASONAL ALLERGY
  3. TURMERIC [Concomitant]
     Indication: PHYTOTHERAPY
  4. ATARAX [Concomitant]
     Indication: URTICARIA
  5. VITAMIN D [Concomitant]
     Indication: VITAMIN SUPPLEMENTATION
  6. ALLEGRA [Concomitant]
     Indication: SEASONAL ALLERGY
  7. ZOLOFT [Concomitant]
     Indication: DEPRESSION
  8. METHOTREXATE [Concomitant]
     Indication: RHEUMATOID ARTHRITIS
  9. SYNTHROID [Concomitant]
     Indication: BLOOD THYROID STIMULATING HORMONE DECREASED
  10. MOBIC [Concomitant]
     Indication: ANTIINFLAMMATORY THERAPY
  11. COQ10 [Concomitant]
     Indication: VITAMIN SUPPLEMENTATION
  12. ACIDUM ASCORBICUM W/FOLIC ACID [Concomitant]
     Indication: VITAMIN SUPPLEMENTATION
  13. SULFASALAZINE [Concomitant]
     Indication: RHEUMATOID ARTHRITIS
     Dosage: 2 TABLETS
  14. PROTONIX [Concomitant]
     Indication: GASTROOESOPHAGEAL REFLUX DISEASE
  15. PRAVASTATIN [Concomitant]
     Indication: BLOOD CHOLESTEROL INCREASED
  16. HUMIRA [Suspect]
     Indication: RHEUMATOID ARTHRITIS
     Dates: start: 20110406
  17. ATENOLOL [Concomitant]
     Indication: HYPERTENSION

REACTIONS (1)
  - RASH ERYTHEMATOUS [None]
